FAERS Safety Report 4684234-7 (Version None)
Quarter: 2005Q2

REPORT INFORMATION
  Report Type: 
  Country: None (occurrence: None)
  Receive Date: 20050531
  Receipt Date: 20050202
  Transmission Date: 20051028
  Serious: Yes (Hospitalization)
  Sender: FDA-Public Use
  Company Number: 200510900US

PATIENT
  Age: 70 Year
  Sex: Female
  Weight: 68.2 kg

DRUGS (17)
  1. LOVENOX [Suspect]
  2. SPIRONOLACTONE [Concomitant]
  3. METOPROLOL [Concomitant]
  4. PRAVASTATIN SODIUM (PRAVACHOL) [Concomitant]
  5. PAIN MEDICATION [Concomitant]
  6. HYDROCHLOROTHIAZIDE [Concomitant]
  7. FLUTICASONE PROPIONATE (FLOVENT) [Concomitant]
  8. METOPROLOL TARTRATE (LOPRESSOR) [Concomitant]
  9. SPIRONOLACTONE, HYDROCHLOROTHIAZIDE (ALDACTAZIDE) [Concomitant]
  10. COLECALCIFEROL, MAGNESIUM, MANGANESE, COPPER, ZINC, CALCIUM (CALTRATE [Concomitant]
  11. PRAVASTATIN SODIUM (PRAVACHOL) [Concomitant]
  12. TROSPIUM CHLORIDE [Concomitant]
  13. PARACETAMOL, HYDROCODONE BITARTRATE (LORCET) [Concomitant]
  14. POTASSIUM CHLORIDE [Concomitant]
  15. DOXYCYCLINE MONOHYDRATE (VIBRAMYCIN TABS) [Concomitant]
  16. TEMAZEPAM [Concomitant]
  17. MACROGOL (MIRALAX) [Concomitant]

REACTIONS (1)
  - ABDOMINAL HAEMATOMA [None]
